FAERS Safety Report 10328925 (Version 2)
Quarter: 2014Q3

REPORT INFORMATION
  Report Type: Spontaneous
  Country: US (occurrence: US)
  Receive Date: 20140721
  Receipt Date: 20140721
  Transmission Date: 20150326
  Serious: Yes (Hospitalization, Other)
  Sender: FDA-Public Use
  Company Number: US-SA-2011-06322

PATIENT
  Age: 61 Year
  Sex: Male

DRUGS (7)
  1. RABIES (HDC) VACCINE [Suspect]
     Active Substance: RABIES VACCINE
     Indication: IMMUNISATION
     Route: 030
     Dates: start: 20110801, end: 20110801
  2. RABIES (HDC) VACCINE [Suspect]
     Active Substance: RABIES VACCINE
     Indication: IMMUNISATION
     Route: 030
     Dates: start: 20110804, end: 20110804
  3. LATANOPROST. [Concomitant]
     Active Substance: LATANOPROST
  4. MULTIVITAMINS [Concomitant]
     Active Substance: VITAMINS
  5. PASTEURIZED HUMAN RABIES IMMUNOGLOBULIN [Suspect]
     Active Substance: RABIES IMMUNE GLOBULIN (HUMAN)
     Indication: PRODUCT USED FOR UNKNOWN INDICATION
     Dosage: DAILY DOSE TEXT : 1 PARTIAL DOSE APPROX. 4 ML AROUNG THUMB
     Route: 030
     Dates: start: 20110801, end: 20110801
  6. ASPIRIN. [Concomitant]
     Active Substance: ASPIRIN
  7. IMMUNOGLOBULIN HUMAN ANTIRABIES [Suspect]
     Active Substance: HUMAN RABIES VIRUS IMMUNE GLOBULIN
     Indication: IMMUNISATION
     Route: 051
     Dates: start: 20110801, end: 20110801

REACTIONS (29)
  - Muscle rigidity [Unknown]
  - Flushing [Unknown]
  - Hypertension [Unknown]
  - Vaccination complication [Not Recovered/Not Resolved]
  - Lethargy [Not Recovered/Not Resolved]
  - Hyperhidrosis [Not Recovered/Not Resolved]
  - Unresponsive to stimuli [Recovered/Resolved]
  - Slow speech [Unknown]
  - Diplopia [Unknown]
  - Neurological symptom [Not Recovered/Not Resolved]
  - Myalgia [Unknown]
  - Hypoaesthesia [Unknown]
  - Aphasia [Unknown]
  - Paralysis flaccid [Unknown]
  - Apnoea [Not Recovered/Not Resolved]
  - Tonic clonic movements [Unknown]
  - Unresponsive to stimuli [Unknown]
  - Hypertension [Unknown]
  - Rhinorrhoea [Unknown]
  - Ophthalmoplegia [Not Recovered/Not Resolved]
  - Aphasia [Recovered/Resolved]
  - Gaze palsy [Unknown]
  - Adverse reaction [Not Recovered/Not Resolved]
  - Hypokinesia [Recovered/Resolved]
  - Respiratory arrest [Unknown]
  - Dizziness [Unknown]
  - Paralysis [Not Recovered/Not Resolved]
  - Pallor [Not Recovered/Not Resolved]
  - Dyspnoea [Not Recovered/Not Resolved]

NARRATIVE: CASE EVENT DATE: 20110801
